FAERS Safety Report 21271850 (Version 1)
Quarter: 2022Q3

REPORT INFORMATION
  Report Type: Spontaneous
  Country: CN (occurrence: CN)
  Receive Date: 20220830
  Receipt Date: 20220830
  Transmission Date: 20221027
  Serious: Yes (Other)
  Sender: FDA-Public Use
  Company Number: CN-ABBOTT-2022A-1352332

PATIENT
  Age: 35 Year
  Sex: Male
  Weight: 76 kg

DRUGS (6)
  1. FENOFIBRATE [Suspect]
     Active Substance: FENOFIBRATE
     Indication: Lipids increased
     Route: 048
     Dates: start: 20220815, end: 20220816
  2. PHLOROGLUCINOL [Suspect]
     Active Substance: PHLOROGLUCINOL
     Indication: Pain
     Route: 041
     Dates: start: 20220814, end: 20220816
  3. SOMATOSTATIN [Suspect]
     Active Substance: SOMATOSTATIN
     Indication: Pancreatic enzymes increased
     Route: 041
     Dates: start: 20220814, end: 20220816
  4. OMEPRAZOLE SODIUM [Suspect]
     Active Substance: OMEPRAZOLE SODIUM
     Indication: Gastric pH decreased
     Route: 042
     Dates: start: 20220814, end: 20220816
  5. SODIUM CHLORIDE [Concomitant]
     Active Substance: SODIUM CHLORIDE
     Indication: Vehicle solution use
     Route: 041
     Dates: start: 20220814, end: 20220816
  6. DEXTROSE [Concomitant]
     Active Substance: DEXTROSE
     Indication: Vehicle solution use
     Route: 041
     Dates: start: 20220814, end: 20220816

REACTIONS (3)
  - Swelling face [Recovering/Resolving]
  - Lip swelling [Recovering/Resolving]
  - Plantar fasciitis [Recovering/Resolving]

NARRATIVE: CASE EVENT DATE: 20220816
